FAERS Safety Report 21712380 (Version 3)
Quarter: 2022Q4

REPORT INFORMATION
  Report Type: Spontaneous
  Country: US (occurrence: US)
  Receive Date: 20221212
  Receipt Date: 20221220
  Transmission Date: 20230113
  Serious: Yes (Other)
  Sender: FDA-Public Use
  Company Number: US-SA-SAC20221208000776

PATIENT
  Age: 55 Year
  Sex: Female

DRUGS (1)
  1. KEVZARA [Suspect]
     Active Substance: SARILUMAB
     Indication: Rheumatoid arthritis
     Dosage: 200 MG, QOW
     Route: 058
     Dates: start: 20220927

REACTIONS (14)
  - Idiopathic pulmonary fibrosis [Unknown]
  - Rheumatoid arthritis [Unknown]
  - Drug ineffective [Unknown]
  - Erythema [Unknown]
  - Condition aggravated [Unknown]
  - Pruritus [Unknown]
  - Wheezing [Unknown]
  - Tenderness [Unknown]
  - Nasal congestion [Unknown]
  - Pain [Unknown]
  - Vision blurred [Unknown]
  - Vitreous floaters [Unknown]
  - Rash [Unknown]
  - Swelling [Unknown]

NARRATIVE: CASE EVENT DATE: 20220101
